FAERS Safety Report 5903003-0 (Version None)
Quarter: 2008Q3

REPORT INFORMATION
  Report Type: 
  Country: None (occurrence: None)
  Receive Date: 20080930
  Receipt Date: 20080807
  Transmission Date: 20090109
  Serious: No
  Sender: FDA-Public Use
  Company Number: US-BAYER-200830796NA

PATIENT
  Sex: Female

DRUGS (1)
  1. OCELLA [Suspect]
     Indication: DRUG USE FOR UNKNOWN INDICATION
     Route: 048
     Dates: start: 20080728, end: 20080807

REACTIONS (4)
  - FLUID RETENTION [None]
  - IRRITABILITY [None]
  - MICTURITION URGENCY [None]
  - POLLAKIURIA [None]
